APPROVED DRUG PRODUCT: ZANTAC IN PLASTIC CONTAINER
Active Ingredient: RANITIDINE HYDROCHLORIDE
Strength: EQ 1MG BASE/ML
Dosage Form/Route: INJECTABLE;INJECTION
Application: N019593 | Product #002
Applicant: PAI HOLDINGS LLC DBA PHARMACEUTICAL ASSOCIATES INC
Approved: Sep 27, 1991 | RLD: No | RS: No | Type: DISCN